FAERS Safety Report 9372825 (Version 2)
Quarter: 2013Q3

REPORT INFORMATION
  Report Type: Report from Study
  Country: FR (occurrence: FR)
  Receive Date: 20130627
  Receipt Date: 20130703
  Transmission Date: 20140515
  Serious: Yes (Life-Threatening, Hospitalization, Other)
  Sender: FDA-Public Use
  Company Number: FR-INCYTE CORPORATION-2013IN001160

PATIENT
  Age: 57 Year
  Sex: Female
  Weight: 52 kg

DRUGS (6)
  1. INC424 [Suspect]
     Indication: MYELOFIBROSIS
     Dosage: 20 MG, QD
     Route: 048
     Dates: start: 20130206, end: 20130305
  2. INC424 [Suspect]
     Dosage: 30 MG, QD
     Route: 048
     Dates: start: 20130306, end: 20130515
  3. INC424 [Suspect]
     Dosage: 30 MG, QD
     Route: 048
     Dates: start: 20130517, end: 20130523
  4. TRAMADOL HYDROCHLORIDE [Concomitant]
     Dosage: UNK
     Dates: start: 20130518
  5. ARANESP [Concomitant]
     Dosage: UNK
     Dates: start: 201006
  6. ORACILLINE [Concomitant]
     Dosage: UNK
     Dates: start: 20130517

REACTIONS (3)
  - Myocarditis [Recovered/Resolved with Sequelae]
  - Left ventricular failure [Recovered/Resolved with Sequelae]
  - Cardiogenic shock [Recovered/Resolved with Sequelae]
